FAERS Safety Report 11026027 (Version 2)
Quarter: 2015Q3

REPORT INFORMATION
  Report Type: Spontaneous
  Country: JP (occurrence: JP)
  Receive Date: 20150414
  Receipt Date: 20150709
  Transmission Date: 20151125
  Serious: Yes (Hospitalization)
  Sender: FDA-Public Use
  Company Number: JP-PFIZER INC-2015123762

PATIENT
  Age: 65 Year
  Sex: Male
  Weight: 61 kg

DRUGS (40)
  1. ELPLAT [Suspect]
     Active Substance: OXALIPLATIN
     Dosage: 140 MG, 1X/DAY
     Route: 041
     Dates: start: 20130819, end: 20130819
  2. LEVOLEUCOVORIN CALCIUM [Concomitant]
     Active Substance: LEVOLEUCOVORIN CALCIUM
     Dosage: 175 MG, 1X/DAY
     Route: 041
     Dates: start: 20130902, end: 20130903
  3. LEVOLEUCOVORIN CALCIUM [Concomitant]
     Active Substance: LEVOLEUCOVORIN CALCIUM
     Dosage: 175 MG, 1X/DAY
     Route: 041
     Dates: start: 20131007, end: 20131008
  4. 5-FU [Concomitant]
     Active Substance: FLUOROURACIL
     Dosage: 650 MG, 1X/DAY
     Route: 040
     Dates: start: 20130902, end: 20130903
  5. 5-FU [Concomitant]
     Active Substance: FLUOROURACIL
     Dosage: 650 MG, 1X/DAY
     Route: 040
     Dates: start: 20130917, end: 20130918
  6. 5-FU [Concomitant]
     Active Substance: FLUOROURACIL
     Dosage: 1050 MG, 1X/DAY
     Route: 041
     Dates: start: 20130917, end: 20130918
  7. 5-FU [Concomitant]
     Active Substance: FLUOROURACIL
     Dosage: 1050 MG, 1X/DAY
     Route: 041
     Dates: start: 20131021, end: 20131022
  8. ELPLAT [Suspect]
     Active Substance: OXALIPLATIN
     Dosage: 140 MG, 1X/DAY
     Route: 041
     Dates: start: 20130917, end: 20130917
  9. 5-FU [Concomitant]
     Active Substance: FLUOROURACIL
     Dosage: 650 MG, 1X/DAY
     Route: 040
     Dates: start: 20130819, end: 20130820
  10. 5-FU [Concomitant]
     Active Substance: FLUOROURACIL
     Dosage: 1050 MG, 1X/DAY
     Route: 041
     Dates: start: 20130819, end: 20130820
  11. ELPLAT [Suspect]
     Active Substance: OXALIPLATIN
     Dosage: UNK
  12. ELPLAT [Suspect]
     Active Substance: OXALIPLATIN
     Dosage: UNK
  13. 5-FU [Concomitant]
     Active Substance: FLUOROURACIL
     Indication: RECTAL CANCER
     Dosage: 650 MG, 1X/DAY
     Route: 040
     Dates: start: 20130805, end: 20130806
  14. 5-FU [Concomitant]
     Active Substance: FLUOROURACIL
     Dosage: 650 MG, 1X/DAY
     Route: 040
     Dates: start: 20131007, end: 20131008
  15. AVASTIN [Concomitant]
     Active Substance: BEVACIZUMAB
     Dosage: 300 MG, 1X/DAY
     Route: 041
     Dates: start: 20130902, end: 20130902
  16. DECADRON [Concomitant]
     Active Substance: DEXAMETHASONE
     Dosage: UNK
     Dates: start: 20130805, end: 20131105
  17. LEVOLEUCOVORIN CALCIUM [Concomitant]
     Active Substance: LEVOLEUCOVORIN CALCIUM
     Dosage: 175 MG, 1X/DAY
     Route: 041
     Dates: start: 20130917, end: 20130918
  18. AVASTIN [Concomitant]
     Active Substance: BEVACIZUMAB
     Dosage: 300 MG, 1X/DAY
     Route: 041
     Dates: start: 20131007, end: 20131007
  19. AVASTIN [Concomitant]
     Active Substance: BEVACIZUMAB
     Dosage: 300 MG, 1X/DAY
     Route: 041
     Dates: start: 20131021, end: 20131021
  20. CEFAMEZIN [Concomitant]
     Active Substance: CEFAZOLIN
     Dosage: UNK
     Dates: start: 20131112, end: 20131126
  21. PREDONINE [Concomitant]
     Active Substance: PREDNISOLONE\PREDNISOLONE ACETATE\PREDNISOLONE SODIUM SUCCINATE
     Dosage: UNK
     Dates: start: 20131114, end: 20131120
  22. ELPLAT [Suspect]
     Active Substance: OXALIPLATIN
     Dosage: 140 MG, 1X/DAY
     Route: 041
     Dates: start: 20131007, end: 20131007
  23. ELPLAT [Suspect]
     Active Substance: OXALIPLATIN
     Dosage: 175 MG, 1X/DAY
     Route: 041
  24. LEVOLEUCOVORIN CALCIUM [Concomitant]
     Active Substance: LEVOLEUCOVORIN CALCIUM
     Dosage: 175 MG, 1X/DAY
     Route: 041
     Dates: start: 20131021, end: 20131022
  25. 5-FU [Concomitant]
     Active Substance: FLUOROURACIL
     Dosage: 1050 MG, 1X/DAY
     Route: 041
     Dates: start: 20130902, end: 20130903
  26. 5-FU [Concomitant]
     Active Substance: FLUOROURACIL
     Dosage: 650 MG, 1X/DAY
     Route: 040
     Dates: start: 20131021, end: 20131022
  27. AVASTIN [Concomitant]
     Active Substance: BEVACIZUMAB
     Indication: RECTAL CANCER
     Dosage: 300 MG, 1X/DAY
     Route: 041
     Dates: start: 20130805, end: 20130805
  28. AVASTIN [Concomitant]
     Active Substance: BEVACIZUMAB
     Dosage: 300 MG, 1X/DAY
     Route: 041
     Dates: start: 20130917, end: 20130917
  29. POLARAMINE [Concomitant]
     Active Substance: DEXCHLORPHENIRAMINE MALEATE
     Dosage: UNK
     Dates: start: 20131105, end: 20131105
  30. LEVOLEUCOVORIN CALCIUM [Concomitant]
     Active Substance: LEVOLEUCOVORIN CALCIUM
     Dosage: 175 MG, 1X/DAY
     Route: 041
     Dates: start: 20130819, end: 20130820
  31. 5-FU [Concomitant]
     Active Substance: FLUOROURACIL
     Dosage: 1050 MG, 1X/DAY
     Route: 041
     Dates: start: 20130805, end: 20130806
  32. 5-FU [Concomitant]
     Active Substance: FLUOROURACIL
     Dosage: 1050 MG, 1X/DAY
     Route: 041
     Dates: start: 20131007, end: 20131008
  33. AVASTIN [Concomitant]
     Active Substance: BEVACIZUMAB
     Dosage: 300 MG, 1X/DAY
     Route: 041
     Dates: start: 20130819, end: 20130819
  34. ELPLAT [Suspect]
     Active Substance: OXALIPLATIN
     Indication: RECTAL CANCER
     Dosage: 140 MG, 1X/DAY
     Route: 041
     Dates: start: 20130805, end: 20130805
  35. ELPLAT [Suspect]
     Active Substance: OXALIPLATIN
     Dosage: 140 MG, 1X/DAY
     Dates: start: 20130902, end: 20130902
  36. ELPLAT [Suspect]
     Active Substance: OXALIPLATIN
     Dosage: 140 MG, 1X/DAY
     Route: 041
     Dates: start: 20131021, end: 20131021
  37. LEVOLEUCOVORIN CALCIUM [Concomitant]
     Active Substance: LEVOLEUCOVORIN CALCIUM
     Indication: RECTAL CANCER
     Dosage: 175 MG, 1X/DAY
     Route: 041
     Dates: start: 20130805, end: 20130806
  38. KYTRIL [Concomitant]
     Active Substance: GRANISETRON HYDROCHLORIDE
     Dosage: UNK
     Dates: start: 20130805, end: 20131105
  39. AMARYL [Concomitant]
     Active Substance: GLIMEPIRIDE
     Dosage: UNK
     Dates: end: 20140506
  40. OPYSTAN [Concomitant]
     Active Substance: MEPERIDINE
     Dosage: UNK
     Dates: start: 20131114, end: 20131114

REACTIONS (2)
  - Pneumomediastinum [Recovered/Resolved]
  - Interstitial lung disease [Recovering/Resolving]

NARRATIVE: CASE EVENT DATE: 20130903
